FAERS Safety Report 5316610-3 (Version None)
Quarter: 2007Q2

REPORT INFORMATION
  Report Type: 
  Country: None (occurrence: None)
  Receive Date: 20070504
  Receipt Date: 20070424
  Transmission Date: 20071010
  Serious: Yes (Hospitalization)
  Sender: FDA-Public Use
  Company Number: US-AMGEN-US221359

PATIENT
  Sex: Female

DRUGS (18)
  1. PANITUMUMAB [Suspect]
     Route: 042
     Dates: start: 20070130, end: 20070220
  2. PANITUMUMAB [Suspect]
     Route: 042
     Dates: start: 20070220, end: 20070220
  3. IRINOTECAN HCL [Concomitant]
     Dates: start: 20070220, end: 20070220
  4. IRINOTECAN HCL [Concomitant]
     Dates: start: 20070301, end: 20070301
  5. IRINOTECAN HCL [Concomitant]
     Dates: start: 20070301, end: 20070301
  6. IRINOTECAN HCL [Concomitant]
     Dates: start: 20070301, end: 20070301
  7. IRINOTECAN HCL [Concomitant]
     Dates: start: 20070301, end: 20070301
  8. LEVAQUIN [Concomitant]
     Route: 042
     Dates: start: 20070301, end: 20070327
  9. LEVAQUIN [Concomitant]
     Route: 048
     Dates: start: 20070327
  10. FLAGYL [Concomitant]
     Route: 042
  11. FLAGYL [Concomitant]
     Route: 048
  12. VICODIN [Concomitant]
     Route: 048
  13. SODIUM CHLORIDE [Concomitant]
     Route: 042
  14. POTASSIUM CHLORIDE [Concomitant]
     Route: 042
  15. DIPHENHYDRAMINE HCL [Concomitant]
     Route: 042
  16. ONDANSETRON [Concomitant]
     Route: 042
  17. HYDROCODONE BITARTRATE [Concomitant]
  18. TPN [Concomitant]
     Dates: start: 20070315

REACTIONS (1)
  - ABDOMINAL ABSCESS [None]
